FAERS Safety Report 6207643-3 (Version None)
Quarter: 2009Q2

REPORT INFORMATION
  Report Type: 
  Country: None (occurrence: None)
  Receive Date: 20090528
  Receipt Date: 20090519
  Transmission Date: 20091009
  Serious: Yes (Hospitalization, Other)
  Sender: FDA-Public Use
  Company Number: US-GILEAD-2009-0020951

PATIENT
  Sex: Male
  Weight: 74.91 kg

DRUGS (6)
  1. TRUVADA [Suspect]
     Indication: HIV INFECTION
  2. KALETRA [Concomitant]
     Indication: HIV INFECTION
     Route: 048
     Dates: start: 20070101
  3. METHADONE [Concomitant]
  4. OXYCONTIN [Concomitant]
  5. ANDROGEL [Concomitant]
  6. LORAZEPAM [Concomitant]

REACTIONS (1)
  - RHABDOMYOLYSIS [None]
